FAERS Safety Report 8815628 (Version 4)
Quarter: 2013Q3

REPORT INFORMATION
  Report Type: Spontaneous
  Country: US (occurrence: US)
  Receive Date: 20120928
  Receipt Date: 20130717
  Transmission Date: 20140515
  Serious: Yes (Hospitalization, Other)
  Sender: FDA-Public Use
  Company Number: US-009507513-1209USA009479

PATIENT
  Sex: Female
  Weight: 63.22 kg

DRUGS (2)
  1. FOSAMAX [Suspect]
     Indication: OSTEOPOROSIS
     Dosage: 70 MG, QW
     Route: 048
     Dates: end: 20100311
  2. BONIVA [Suspect]
     Indication: OSTEOPOROSIS
     Dosage: 150 MG, UNK
     Dates: start: 20060411, end: 200804

REACTIONS (35)
  - Femur fracture [Unknown]
  - Intramedullary rod insertion [Unknown]
  - Femur fracture [Unknown]
  - Intramedullary rod insertion [Unknown]
  - Renal transplant [Unknown]
  - Alanine aminotransferase increased [Unknown]
  - Aspartate aminotransferase increased [Unknown]
  - Abasia [Unknown]
  - Pelvic fracture [Unknown]
  - Fall [Unknown]
  - Tooth extraction [Unknown]
  - Bone disorder [Unknown]
  - Fracture [Unknown]
  - Hyperlipidaemia [Unknown]
  - Cardiomegaly [Unknown]
  - Tonsillectomy [Unknown]
  - Adenoidectomy [Unknown]
  - Uterine dilation and curettage [Unknown]
  - Spondylolisthesis [Unknown]
  - Arthropathy [Unknown]
  - Osteoarthritis [Unknown]
  - Neuropathy peripheral [Unknown]
  - Radiculopathy [Unknown]
  - Myopathy [Unknown]
  - Balance disorder [Unknown]
  - Osteoarthritis [Unknown]
  - Cataract [Unknown]
  - Aortic valve sclerosis [Unknown]
  - Female sterilisation [Unknown]
  - Anaemia [Unknown]
  - Plastic surgery to the face [Unknown]
  - Back pain [Not Recovered/Not Resolved]
  - Pain in extremity [Unknown]
  - Gastritis [Unknown]
  - Gastrooesophageal reflux disease [Unknown]
